FAERS Safety Report 6555789-2 (Version None)
Quarter: 2010Q1

REPORT INFORMATION
  Report Type: 
  Country: None (occurrence: None)
  Receive Date: 20100128
  Receipt Date: 20100118
  Transmission Date: 20100710
  Serious: Yes (Hospitalization)
  Sender: FDA-Public Use
  Company Number: FI-JNJFOC-20080400771

PATIENT
  Sex: Female
  Weight: 52.5 kg

DRUGS (10)
  1. PALIPERIDONE [Suspect]
     Indication: SCHIZOPHRENIA
     Route: 048
  2. PALIPERIDONE [Suspect]
     Route: 048
  3. PALIPERIDONE [Suspect]
     Route: 048
  4. PALIPERIDONE [Suspect]
     Route: 048
  5. PALIPERIDONE [Suspect]
     Route: 048
  6. PULMICORT [Concomitant]
     Indication: FATIGUE
  7. PULMICORT [Concomitant]
     Indication: COUGH
  8. BRICANYL [Concomitant]
     Indication: FATIGUE
  9. BRICANYL [Concomitant]
     Indication: COUGH
  10. KEFEXIN [Concomitant]
     Indication: SKIN INFECTION
     Route: 048

REACTIONS (3)
  - ANXIETY [None]
  - EXTRAPYRAMIDAL DISORDER [None]
  - SUICIDAL IDEATION [None]
